FAERS Safety Report 18702876 (Version 2)
Quarter: 2021Q1

REPORT INFORMATION
  Report Type: Other
  Country: PT (occurrence: PT)
  Receive Date: 20210105
  Receipt Date: 20210110
  Transmission Date: 20210419
  Serious: Yes (Death)
  Sender: FDA-Public Use
  Company Number: PT-ROCHE-2743966

PATIENT

DRUGS (1)
  1. RITUXIMAB. [Suspect]
     Active Substance: RITUXIMAB
     Indication: NODULAR LYMPHOCYTE PREDOMINANT HODGKIN LYMPHOMA
     Dosage: CONCENTRATE FOR SOLUTION FOR INFUSION
     Route: 065

REACTIONS (4)
  - Intentional product use issue [Fatal]
  - Off label use [Fatal]
  - Disease recurrence [Fatal]
  - Lymphoma transformation [Fatal]
